FAERS Safety Report 26166216 (Version 1)
Quarter: 2025Q4

REPORT INFORMATION
  Report Type: Report from Study
  Country: CA (occurrence: CA)
  Receive Date: 20251216
  Receipt Date: 20251216
  Transmission Date: 20260117
  Serious: Yes (Other)
  Sender: TEVA
  Company Number: CA-TEVA-VS-3403467

PATIENT
  Sex: Male

DRUGS (1)
  1. ZOLEDRONIC ACID [Suspect]
     Active Substance: ZOLEDRONIC ACID
     Indication: Osteoporosis
     Dosage: ZOLEDRONIC ACID INJECTION, DOSE FORM: SOLUTION INTRAVENOUS
     Route: 065

REACTIONS (5)
  - Dupuytren^s contracture [Unknown]
  - Rotator cuff syndrome [Unknown]
  - Amputee [Unknown]
  - Arthritis [Unknown]
  - Hip fracture [Unknown]
